FAERS Safety Report 14539975 (Version 2)
Quarter: 2018Q1

REPORT INFORMATION
  Report Type: Spontaneous
  Country: TW (occurrence: TW)
  Receive Date: 20180216
  Receipt Date: 20180302
  Transmission Date: 20180509
  Serious: Yes (Death, Hospitalization)
  Sender: FDA-Public Use
  Company Number: TW-ACTELION-A-CH2017-153119

PATIENT
  Age: 52 Year
  Sex: Male

DRUGS (18)
  1. SALBUTAMOL [Concomitant]
     Active Substance: ALBUTEROL
  2. KASCOAL [Concomitant]
  3. LORAZIN [Concomitant]
  4. AMINOPHYLLINE. [Concomitant]
     Active Substance: AMINOPHYLLINE
     Dosage: 50 MG, QD
  5. VENTAVIS [Concomitant]
     Active Substance: ILOPROST
     Indication: PULMONARY ARTERIAL HYPERTENSION
     Dosage: UNK
     Route: 055
     Dates: start: 20180202, end: 20180212
  6. OPSUMIT [Suspect]
     Active Substance: MACITENTAN
     Indication: PULMONARY ARTERIAL HYPERTENSION
     Dosage: 10 MG, QD
     Route: 048
     Dates: start: 20141222, end: 20180212
  7. GLULESS [Concomitant]
     Dosage: 50 MG, QD
  8. ROSIS [Concomitant]
     Active Substance: FUROSEMIDE
     Dosage: 20 MG, QD
  9. MEDICON A [Concomitant]
  10. MORPHINE [Concomitant]
     Active Substance: MORPHINE
  11. CEFOXITIN SODIUM [Concomitant]
     Active Substance: CEFOXITIN SODIUM
  12. SERLIN [Concomitant]
  13. SPIRONOLACTONE. [Concomitant]
     Active Substance: SPIRONOLACTONE
     Dosage: 25 MG, UNK
  14. MAFARIN [Concomitant]
     Dosage: 1.25 MG, QD
  15. ADEMPAS [Concomitant]
     Active Substance: RIOCIGUAT
     Indication: PULMONARY ARTERIAL HYPERTENSION
     Dosage: 2.5 MG, TID
     Route: 048
     Dates: start: 201709, end: 20180212
  16. ACTEIN [Concomitant]
  17. THROUGH [Concomitant]
  18. MOSAPULIN [Concomitant]

REACTIONS (8)
  - Arrhythmia [Unknown]
  - Haemoptysis [Recovered/Resolved]
  - Dyspnoea [Unknown]
  - Fatigue [Unknown]
  - Cough [Recovered/Resolved]
  - Asthenia [Unknown]
  - Atrial fibrillation [Unknown]
  - Sepsis [Fatal]

NARRATIVE: CASE EVENT DATE: 20170425
